FAERS Safety Report 25156301 (Version 2)
Quarter: 2025Q2

REPORT INFORMATION
  Report Type: Spontaneous
  Country: CN (occurrence: CN)
  Receive Date: 20250403
  Receipt Date: 20250409
  Transmission Date: 20250717
  Serious: Yes (Life-Threatening, Other)
  Sender: ELI LILLY AND CO
  Company Number: CN-ELI_LILLY_AND_COMPANY-CN202504000313

PATIENT
  Age: 49 Year
  Sex: Male
  Weight: 72.5 kg

DRUGS (1)
  1. ALIMTA [Suspect]
     Active Substance: PEMETREXED DISODIUM
     Indication: Neoplasm malignant
     Route: 041
     Dates: start: 20250311, end: 20250311

REACTIONS (5)
  - Granulocyte count decreased [Not Recovered/Not Resolved]
  - Chronic kidney disease [Unknown]
  - Septic shock [Unknown]
  - Malignant neoplasm progression [Unknown]
  - Blood creatinine increased [Unknown]

NARRATIVE: CASE EVENT DATE: 20250322
